FAERS Safety Report 6430249-8 (Version None)
Quarter: 2009Q4

REPORT INFORMATION
  Report Type: 
  Country: None (occurrence: None)
  Receive Date: 20091106
  Receipt Date: 20091027
  Transmission Date: 20100525
  Serious: No
  Sender: FDA-Public Use
  Company Number: US-B.I. PHARMACEUTICALS,INC./RIDGEFIELD-2009-BP-12661BP

PATIENT
  Sex: Female

DRUGS (5)
  1. SPIRIVA [Suspect]
     Indication: CHRONIC OBSTRUCTIVE PULMONARY DISEASE
     Dosage: 18 MCG
     Route: 055
     Dates: start: 20070501
  2. FIORINAL [Concomitant]
     Indication: MIGRAINE
  3. FEXOFENADINE [Concomitant]
     Indication: MULTIPLE ALLERGIES
  4. INDERAL [Concomitant]
     Indication: MIGRAINE
  5. VITAMIN [Concomitant]
     Indication: PROPHYLAXIS

REACTIONS (4)
  - ASTHENIA [None]
  - BLOOD CHOLESTEROL INCREASED [None]
  - COUGH [None]
  - INSOMNIA [None]
